FAERS Safety Report 7742016-3 (Version None)
Quarter: 2011Q3

REPORT INFORMATION
  Report Type: 
  Country: None (occurrence: None)
  Receive Date: 20110912
  Receipt Date: 20110905
  Transmission Date: 20111222
  Serious: Yes (Other)
  Sender: FDA-Public Use
  Company Number: SE-B.I. PHARMACEUTICALS,INC./RIDGEFIELD-2010-SW-00396SW

PATIENT
  Sex: Male

DRUGS (1)
  1. PERSANTIN [Suspect]
     Indication: POST PROCEDURAL STROKE

REACTIONS (1)
  - CEREBROVASCULAR ACCIDENT [None]
